FAERS Safety Report 23409608 (Version 1)
Quarter: 2024Q1

REPORT INFORMATION
  Report Type: Spontaneous
  Country: US (occurrence: US)
  Receive Date: 20240117
  Receipt Date: 20240117
  Transmission Date: 20240410
  Serious: No
  Sender: FDA-Public Use
  Company Number: US-PFIZER INC-202400011697

PATIENT
  Age: 86 Year
  Sex: Female
  Weight: 62.6 kg

DRUGS (1)
  1. PAXLOVID [Suspect]
     Active Substance: NIRMATRELVIR\RITONAVIR
     Indication: COVID-19 treatment
     Dosage: TOOK 2 OF THE PILLS; 150-100 MILLIGRAMS
     Route: 048

REACTIONS (4)
  - Dehydration [Unknown]
  - Dysgeusia [Unknown]
  - Diarrhoea [Unknown]
  - Incorrect dose administered [Unknown]
